FAERS Safety Report 14021375 (Version 3)
Quarter: 2018Q2

REPORT INFORMATION
  Report Type: Spontaneous
  Country: NL (occurrence: NL)
  Receive Date: 20170928
  Receipt Date: 20180420
  Transmission Date: 20180711
  Serious: Yes (Hospitalization)
  Sender: FDA-Public Use
  Company Number: PHHY2017NL142370

PATIENT
  Age: 11 Year
  Sex: Male

DRUGS (1)
  1. METHYLPHENIDATE. [Suspect]
     Active Substance: METHYLPHENIDATE
     Indication: PRODUCT USED FOR UNKNOWN INDICATION
     Dosage: 4.8 MG/KG,  MODIFIED RELEASE
     Route: 048

REACTIONS (2)
  - Toxicity to various agents [Recovered/Resolved]
  - No adverse event [Recovered/Resolved]
